FAERS Safety Report 7815036-8 (Version None)
Quarter: 2011Q4

REPORT INFORMATION
  Report Type: 
  Country: None (occurrence: None)
  Receive Date: 20111014
  Receipt Date: 20110929
  Transmission Date: 20120403
  Serious: Yes (Other)
  Sender: FDA-Public Use
  Company Number: US-ROCHE-795531

PATIENT
  Sex: Female
  Weight: 90.7 kg

DRUGS (14)
  1. PREDNISOLONE [Concomitant]
     Indication: RHEUMATOID ARTHRITIS
     Dosage: 10MG/15 MG ALTERNATING
  2. VITAMIN B-12 [Concomitant]
  3. LOVENOX [Concomitant]
     Dates: start: 20110603, end: 20110621
  4. LOVAZA [Concomitant]
  5. NIACIN [Concomitant]
  6. ACTEMRA [Suspect]
  7. FOLIC ACID [Concomitant]
  8. OMEPRAZOLE [Concomitant]
     Indication: GASTROOESOPHAGEAL REFLUX DISEASE
  9. ACTEMRA [Suspect]
  10. ACTEMRA [Suspect]
  11. ACTEMRA [Suspect]
  12. VITAMIN D [Concomitant]
  13. WARFARIN SODIUM [Concomitant]
     Indication: PULMONARY EMBOLISM
     Dosage: DOSE VARIES
  14. ACTEMRA [Suspect]
     Indication: RHEUMATOID ARTHRITIS
     Route: 042

REACTIONS (6)
  - ERUCTATION [None]
  - LIPIDS INCREASED [None]
  - BLOOD TRIGLYCERIDES INCREASED [None]
  - INTERNATIONAL NORMALISED RATIO INCREASED [None]
  - TRANSITIONAL CELL CARCINOMA [None]
  - DYSPEPSIA [None]
